FAERS Safety Report 9258337 (Version 2)
Quarter: 2014Q1

REPORT INFORMATION
  Report Type: Spontaneous
  Country: US (occurrence: None)
  Receive Date: 20121212
  Receipt Date: 20130314
  Transmission Date: 20141002
  Serious: No
  Sender: FDA-Public Use
  Company Number: 1210USA010677

PATIENT
  Age: 41 Year
  Sex: Female

DRUGS (7)
  1. VICTRELIS [Suspect]
     Indication: HEPATITIS C
     Route: 048
     Dates: start: 20120921
  2. RIBAVIRIN [Suspect]
  3. PEGASYS [Suspect]
  4. TRAZODONE HYDROCHLORIDE(TRAZODON HYDROCHLORIDE) [Concomitant]
  5. LORTAB(ACETAMINOPHE,HYDROCODONE BITRATE) [Concomitant]
  6. ASCOL (MESALAMINE) [Concomitant]
  7. CYMBALTA (DULOXETINE HYDROCHLORIDE) [Concomitant]

REACTIONS (7)
  - Nausea [None]
  - Rash [None]
  - Accidental exposure to product [None]
  - Product quality issue [None]
  - Frequent bowel movements [None]
  - Somnolence [None]
  - Medication residue present [None]
